FAERS Safety Report 11776229 (Version 3)
Quarter: 2019Q2

REPORT INFORMATION
  Report Type: Report from Study
  Country: CA (occurrence: CA)
  Receive Date: 20151125
  Receipt Date: 20190619
  Transmission Date: 20190711
  Serious: Yes (Other)
  Sender: FDA-Public Use
  Company Number: CA-ROCHE-1239588

PATIENT
  Age: 56 Year
  Sex: Male
  Weight: 125 kg

DRUGS (9)
  1. ACTEMRA [Suspect]
     Active Substance: TOCILIZUMAB
     Indication: RHEUMATOID ARTHRITIS
     Route: 042
     Dates: start: 20130527
  2. FOLIC ACID. [Concomitant]
     Active Substance: FOLIC ACID
  3. ACTEMRA [Suspect]
     Active Substance: TOCILIZUMAB
     Route: 042
     Dates: start: 20180723
  4. CELEBREX [Concomitant]
     Active Substance: CELECOXIB
  5. PERINDOPRIL [Concomitant]
     Active Substance: PERINDOPRIL
  6. METFORMIN [Concomitant]
     Active Substance: METFORMIN HYDROCHLORIDE
  7. OMEGA 3 [DOCOSAHEXAENOIC ACID;EICOSAPENTAENOIC ACID] [Concomitant]
  8. ARAVA [Concomitant]
     Active Substance: LEFLUNOMIDE
  9. ASA [Concomitant]
     Active Substance: ASPIRIN

REACTIONS (10)
  - Dysphonia [Unknown]
  - White blood cell count increased [Unknown]
  - Productive cough [Unknown]
  - Herpes zoster [Not Recovered/Not Resolved]
  - Rheumatoid arthritis [Unknown]
  - Blood cholesterol increased [Unknown]
  - Blood pressure increased [Unknown]
  - Pain [Not Recovered/Not Resolved]
  - Blood pressure systolic increased [Recovered/Resolved]
  - Nasopharyngitis [Unknown]

NARRATIVE: CASE EVENT DATE: 20130527
